FAERS Safety Report 24576908 (Version 1)
Quarter: 2024Q4

REPORT INFORMATION
  Report Type: Spontaneous
  Country: US (occurrence: None)
  Receive Date: 20241104
  Receipt Date: 20241104
  Transmission Date: 20250114
  Serious: Yes (Hospitalization)
  Sender: Public
  Company Number: None

PATIENT
  Sex: Female

DRUGS (1)
  1. TASIGNA [Suspect]
     Active Substance: NILOTINIB
     Dosage: FREQUENCY : TWICE A DAY;?
     Route: 048
     Dates: start: 202309

REACTIONS (17)
  - Pneumonia [None]
  - Dysphagia [None]
  - Nausea [None]
  - Constipation [None]
  - Insomnia [None]
  - Brain fog [None]
  - Haemorrhage [None]
  - Neuropathy peripheral [None]
  - Blood iron decreased [None]
  - Hypoaesthesia [None]
  - Muscle spasms [None]
  - Restlessness [None]
  - Stomatitis [None]
  - Onychomycosis [None]
  - Tinnitus [None]
  - Rash [None]
  - Product distribution issue [None]
